FAERS Safety Report 22529783 (Version 1)
Quarter: 2023Q2

REPORT INFORMATION
  Report Type: Other
  Country: US (occurrence: None)
  Receive Date: 20230607
  Receipt Date: 20230607
  Transmission Date: 20230721
  Serious: No
  Sender: FDA-Public Use
  Company Number: US-ROCHE-3362388

PATIENT
  Age: 36 Year
  Sex: Female

DRUGS (9)
  1. OCREVUS [Suspect]
     Active Substance: OCRELIZUMAB
     Indication: Relapsing multiple sclerosis
     Dosage: PRESCRIBED AS DAY 1 300MG + DAY 15 300MG, INFUSE 600MG EVERY 6 MONTHS
     Route: 065
     Dates: start: 20190404
  2. METOPROLOL [Concomitant]
     Active Substance: METOPROLOL
  3. FLEXERIL [Concomitant]
     Active Substance: CYCLOBENZAPRINE HYDROCHLORIDE
  4. ADDERALL XR [Concomitant]
     Active Substance: AMPHETAMINE ASPARTATE\AMPHETAMINE SULFATE\DEXTROAMPHETAMINE SACCHARATE\DEXTROAMPHETAMINE SULFATE
  5. BREO ELLIPTA [Concomitant]
     Active Substance: FLUTICASONE FUROATE\VILANTEROL TRIFENATATE
  6. REGLAN [Concomitant]
     Active Substance: METOCLOPRAMIDE HYDROCHLORIDE
  7. PROVENTIL [Concomitant]
     Active Substance: ALBUTEROL
  8. TOPAMAX [Concomitant]
     Active Substance: TOPIRAMATE
  9. TYLENOL [Concomitant]
     Active Substance: ACETAMINOPHEN

REACTIONS (4)
  - Skin laceration [Recovered/Resolved]
  - Herpes zoster [Recovered/Resolved]
  - COVID-19 [Unknown]
  - Supraventricular tachycardia [Not Recovered/Not Resolved]

NARRATIVE: CASE EVENT DATE: 20221001
